FAERS Safety Report 25080959 (Version 1)
Quarter: 2025Q1

REPORT INFORMATION
  Report Type: Spontaneous
  Country: CO (occurrence: CO)
  Receive Date: 20250315
  Receipt Date: 20250315
  Transmission Date: 20250408
  Serious: Yes (Hospitalization)
  Sender: AMGEN
  Company Number: CO-AMGEN-COLSP2025048461

PATIENT
  Age: 2 Year
  Sex: Female
  Weight: 10.8 kg

DRUGS (7)
  1. PEGFILGRASTIM [Suspect]
     Active Substance: PEGFILGRASTIM
     Indication: Prophylaxis
     Route: 058
     Dates: start: 20250227, end: 20250227
  2. VINCRISTINE [Concomitant]
     Active Substance: VINCRISTINE
     Indication: Acute lymphocytic leukaemia
     Route: 040
     Dates: start: 20250217, end: 20250222
  3. METHOTREXATE [Concomitant]
     Active Substance: METHOTREXATE
     Indication: Acute lymphocytic leukaemia
     Route: 040
     Dates: start: 20250217, end: 20250217
  4. LEUCOVORIN CALCIUM [Concomitant]
     Active Substance: LEUCOVORIN CALCIUM
     Indication: Acute lymphocytic leukaemia
     Dosage: 8 MILLIGRAM, Q8H
     Route: 040
     Dates: start: 20250218, end: 20250218
  5. MESNA [Concomitant]
     Active Substance: MESNA
     Indication: Acute lymphocytic leukaemia
     Route: 040
     Dates: start: 20250218, end: 20250220
  6. DAUNORUBICIN [Concomitant]
     Active Substance: DAUNORUBICIN
     Indication: Acute lymphocytic leukaemia
     Route: 040
     Dates: start: 20250221, end: 20250221
  7. PEG/L-ASPARAGINASE [Concomitant]
     Active Substance: PEGASPARGASE
     Indication: Acute lymphocytic leukaemia
     Route: 040
     Dates: start: 20250226, end: 20250226

REACTIONS (2)
  - Rash [Recovered/Resolved with Sequelae]
  - Pulmonary oedema [Recovered/Resolved with Sequelae]

NARRATIVE: CASE EVENT DATE: 20250227
